FAERS Safety Report 18022122 (Version 1)
Quarter: 2020Q3

REPORT INFORMATION
  Report Type: Report from Study
  Country: None (occurrence: US)
  Receive Date: 20200715
  Receipt Date: 20200715
  Transmission Date: 20201103
  Serious: Yes (Hospitalization)
  Sender: FDA-Public Use
  Company Number: US-ABBVIE-20K-163-3477627-00

PATIENT
  Sex: Female

DRUGS (1)
  1. HUMIRA [Suspect]
     Active Substance: ADALIMUMAB
     Indication: PRODUCT USED FOR UNKNOWN INDICATION
     Route: 058

REACTIONS (10)
  - Exposure to SARS-CoV-2 [Unknown]
  - Dizziness [Unknown]
  - Hordeolum [Unknown]
  - Skin laceration [Unknown]
  - Fall [Unknown]
  - Cellulitis [Unknown]
  - Wound infection [Unknown]
  - Arthropod bite [Unknown]
  - Peripheral swelling [Unknown]
  - Neoplasm [Unknown]

NARRATIVE: CASE EVENT DATE: 2020
